FAERS Safety Report 5087483-1 (Version None)
Quarter: 2006Q3

REPORT INFORMATION
  Report Type: 
  Country: None (occurrence: None)
  Receive Date: 20060823
  Receipt Date: 20060823
  Transmission Date: 20061208
  Serious: Yes (Other)
  Sender: FDA-Public Use
  Company Number: None

PATIENT
  Age: 46 Year
  Sex: Female
  Weight: 80.2867 kg

DRUGS (1)
  1. CIPRO [Suspect]
     Indication: UPPER RESPIRATORY TRACT INFECTION
     Dosage: 1 TABET 2X DAY PO
     Route: 048
     Dates: start: 20060810, end: 20060816

REACTIONS (6)
  - AURICULAR SWELLING [None]
  - ERYTHEMA [None]
  - EYELID OEDEMA [None]
  - PHARYNGEAL OEDEMA [None]
  - RASH MACULAR [None]
  - SKIN DISORDER [None]
